FAERS Safety Report 9294722 (Version 1)
Quarter: 2013Q2

REPORT INFORMATION
  Report Type: Spontaneous
  Country: US (occurrence: US)
  Receive Date: 20130517
  Receipt Date: 20130517
  Transmission Date: 20140414
  Serious: No
  Sender: FDA-Public Use
  Company Number: US-PFIZER INC-2013151669

PATIENT
  Age: 48 Year
  Sex: Male
  Weight: 86 kg

DRUGS (3)
  1. SUTENT [Suspect]
     Indication: RENAL CANCER
     Dosage: 50 MG, 1X/DAY
     Route: 048
     Dates: start: 2012
  2. SUTENT [Suspect]
     Dosage: 50 MG, 1X/DAY
     Route: 048
  3. MOXCLAV [Concomitant]
     Dosage: UNK

REACTIONS (1)
  - Incision site complication [Unknown]
